FAERS Safety Report 7650042-8 (Version None)
Quarter: 2011Q3

REPORT INFORMATION
  Report Type: 
  Country: None (occurrence: None)
  Receive Date: 20110802
  Receipt Date: 20110802
  Transmission Date: 20111222
  Serious: No
  Sender: FDA-Public Use
  Company Number: None

PATIENT
  Sex: Male
  Weight: 20.411 kg

DRUGS (3)
  1. GAMUNEX [Suspect]
     Indication: IMMUNODEFICIENCY COMMON VARIABLE
     Dosage: 2 GRAMS
     Route: 058
     Dates: start: 20110726, end: 20110731
  2. VIVAGLOBIN [Concomitant]
  3. HIZENTRA [Concomitant]

REACTIONS (4)
  - PRURITUS [None]
  - SCREAMING [None]
  - INFUSION RELATED REACTION [None]
  - URTICARIA [None]
